FAERS Safety Report 18255013 (Version 2)
Quarter: 2020Q4

REPORT INFORMATION
  Report Type: Spontaneous
  Country: FR (occurrence: FR)
  Receive Date: 20200911
  Receipt Date: 20201023
  Transmission Date: 20210113
  Serious: Yes (Hospitalization, Other)
  Sender: FDA-Public Use
  Company Number: FR-SAMSUNG BIOEPIS-SB-2020-28058

PATIENT
  Age: 7 Year
  Sex: Female

DRUGS (6)
  1. ADALIMUMAB [Suspect]
     Active Substance: ADALIMUMAB
     Indication: CHRONIC RECURRENT MULTIFOCAL OSTEOMYELITIS
  2. METHOTREXATE. [Suspect]
     Active Substance: METHOTREXATE
     Indication: CROHN^S DISEASE
     Dosage: UNKNOWN
     Route: 065
  3. USTEKINUMAB [Suspect]
     Active Substance: USTEKINUMAB
     Indication: CROHN^S DISEASE
     Dosage: UNKNOWN
     Route: 058
  4. INFLIXIMAB [Suspect]
     Active Substance: INFLIXIMAB
     Dosage: UNKNOWN
     Route: 065
  5. ADALIMUMAB [Suspect]
     Active Substance: ADALIMUMAB
     Indication: CROHN^S DISEASE
     Dosage: UNKNOWN
     Route: 058
  6. INFLIXIMAB [Suspect]
     Active Substance: INFLIXIMAB
     Indication: CROHN^S DISEASE
     Route: 065

REACTIONS (6)
  - Product use in unapproved indication [Unknown]
  - Crohn^s disease [Recovered/Resolved]
  - Product use issue [Unknown]
  - Chronic recurrent multifocal osteomyelitis [Recovering/Resolving]
  - Psoriasis [Recovered/Resolved]
  - Therapeutic product effect decreased [Unknown]
